FAERS Safety Report 8544170-2 (Version None)
Quarter: 2012Q3

REPORT INFORMATION
  Report Type: 
  Country: None (occurrence: None)
  Receive Date: 20120727
  Receipt Date: 20120723
  Transmission Date: 20120928
  Serious: Yes (Other)
  Sender: FDA-Public Use
  Company Number: US-ALLERGAN-1209827US

PATIENT
  Age: 61 Year
  Sex: Female

DRUGS (3)
  1. CALCIUM CARBONATE [Concomitant]
     Indication: NUTRITIONAL SUPPORT
     Dosage: 1 DF, QD
     Route: 048
     Dates: start: 20070101
  2. SYNTHROID [Concomitant]
     Indication: HYPOTHYROIDISM
     Dosage: 1 DF, QD
     Route: 048
     Dates: start: 20070101
  3. BOTULINUM TOXIN TYPE A [Suspect]
     Indication: FACIAL SPASM
     Dosage: UNK, SINGLE
     Route: 030
     Dates: start: 20120709, end: 20120709

REACTIONS (7)
  - ROAD TRAFFIC ACCIDENT [None]
  - DRY EYE [None]
  - HEADACHE [None]
  - LAGOPHTHALMOS [None]
  - SUICIDAL IDEATION [None]
  - DIPLOPIA [None]
  - ABNORMAL SENSATION IN EYE [None]
